FAERS Safety Report 7598179-6 (Version None)
Quarter: 2011Q3

REPORT INFORMATION
  Report Type: 
  Country: None (occurrence: None)
  Receive Date: 20110708
  Receipt Date: 20110628
  Transmission Date: 20111222
  Serious: Yes (Other)
  Sender: FDA-Public Use
  Company Number: AT-JNJFOC-20101202723

PATIENT
  Sex: Female
  Weight: 75 kg

DRUGS (3)
  1. PREDNISOLONE [Concomitant]
  2. SIMPONI [Suspect]
     Indication: PSORIASIS
     Route: 058
     Dates: start: 20100510, end: 20101115
  3. SERACTIL [Concomitant]

REACTIONS (3)
  - PREMATURE SEPARATION OF PLACENTA [None]
  - MATERNAL EXPOSURE DURING PREGNANCY [None]
  - OFF LABEL USE [None]
